FAERS Safety Report 23084607 (Version 14)
Quarter: 2024Q2

REPORT INFORMATION
  Report Type: Report from Study
  Country: CA (occurrence: CA)
  Receive Date: 20231019
  Receipt Date: 20240516
  Transmission Date: 20240716
  Serious: Yes (Other)
  Sender: FDA-Public Use
  Company Number: CA-SANDOZ-SDZ2023CA002237

PATIENT
  Sex: Female

DRUGS (11)
  1. ERELZI [Suspect]
     Active Substance: ETANERCEPT-SZZS
     Dosage: 25 MG EVERY 2 WEEKS
     Route: 058
     Dates: start: 20211229
  2. ERELZI [Suspect]
     Active Substance: ETANERCEPT-SZZS
     Dosage: 25 MG, Q2W
     Route: 058
     Dates: start: 20231012
  3. ERELZI [Suspect]
     Active Substance: ETANERCEPT-SZZS
     Dosage: 25 MG, Q2W
     Route: 058
     Dates: start: 20240125
  4. ERELZI [Suspect]
     Active Substance: ETANERCEPT-SZZS
     Dosage: 25 MG, QW
     Route: 058
     Dates: start: 20211229
  5. ERELZI [Suspect]
     Active Substance: ETANERCEPT-SZZS
     Dosage: 25 MG, EVERY 2 WEEKS.
     Route: 058
     Dates: start: 20221229
  6. ERELZI [Suspect]
     Active Substance: ETANERCEPT-SZZS
     Dosage: 50 MG (PREFILLED PEN)
     Route: 058
     Dates: start: 20211229
  7. ERELZI [Suspect]
     Active Substance: ETANERCEPT-SZZS
     Dosage: 50 MG (PREFILLED PEN)
     Route: 058
     Dates: start: 20211229
  8. ERELZI [Suspect]
     Active Substance: ETANERCEPT-SZZS
     Indication: Rheumatoid arthritis
     Dosage: 25 MG EVERY 2 WEEKS (PREFILLED PEN)
     Route: 058
     Dates: start: 20121229
  9. PROLIA [Suspect]
     Active Substance: DENOSUMAB
     Indication: Product used for unknown indication
     Dosage: UNK, PRE-FILLED SYRINGE. PRESERVATIVE-FREE
     Route: 058
  10. ASPIRIN [Concomitant]
     Active Substance: ASPIRIN
     Indication: Product used for unknown indication
     Dosage: 81 MG
     Route: 065
  11. AZITHROMYCIN [Concomitant]
     Active Substance: AZITHROMYCIN
     Indication: Product used for unknown indication
     Dosage: 250 MG, QD
     Route: 065
     Dates: start: 20230713

REACTIONS (18)
  - Squamous cell carcinoma [Unknown]
  - Contusion [Unknown]
  - Skin haemorrhage [Unknown]
  - Scratch [Unknown]
  - Tearfulness [Unknown]
  - Influenza like illness [Unknown]
  - Synovial cyst [Unknown]
  - Arthralgia [Unknown]
  - Anxiety [Unknown]
  - Arthralgia [Unknown]
  - Pain [Unknown]
  - Pruritus [Unknown]
  - Bacterial infection [Unknown]
  - Dyspnoea [Unknown]
  - Bronchitis viral [Unknown]
  - Urticaria [Unknown]
  - Off label use [Unknown]
  - Intentional dose omission [Unknown]
